FAERS Safety Report 7351436-0 (Version None)
Quarter: 2011Q1

REPORT INFORMATION
  Report Type: 
  Country: None (occurrence: None)
  Receive Date: 20110314
  Receipt Date: 20110302
  Transmission Date: 20110831
  Serious: Yes (Other)
  Sender: FDA-Public Use
  Company Number: US-BAYER-2011-020093

PATIENT
  Sex: Male
  Weight: 90.703 kg

DRUGS (3)
  1. ONE-A-DAY MEN'S 50 + ADVANTAGE [Suspect]
     Indication: VITAMIN SUPPLEMENTATION
     Dosage: BOTTLE COUNT 50S
     Dates: start: 20110224
  2. ASPIRIN [Suspect]
     Dosage: 81 MG, QD
     Route: 048
  3. LISINOPRIL [Concomitant]
     Dosage: 5 MG, QD
     Route: 048

REACTIONS (1)
  - HAEMATOCHEZIA [None]
